FAERS Safety Report 5908382-6 (Version None)
Quarter: 2008Q4

REPORT INFORMATION
  Report Type: 
  Country: None (occurrence: None)
  Receive Date: 20081006
  Receipt Date: 20080924
  Transmission Date: 20090506
  Serious: Yes (Life-Threatening, Hospitalization, Other)
  Sender: FDA-Public Use
  Company Number: US-BAYER-200831662NA

PATIENT
  Age: 29 Year
  Sex: Female
  Weight: 79 kg

DRUGS (1)
  1. MIRENA [Suspect]
     Indication: CONTRACEPTION
     Route: 015
     Dates: start: 20080708

REACTIONS (3)
  - CEREBRAL THROMBOSIS [None]
  - CEREBROVASCULAR ACCIDENT [None]
  - LIFE SUPPORT [None]
